FAERS Safety Report 5156105-3 (Version None)
Quarter: 2006Q4

REPORT INFORMATION
  Report Type: 
  Country: None (occurrence: None)
  Receive Date: 20061122
  Receipt Date: 20061016
  Transmission Date: 20070319
  Serious: Yes (Other)
  Sender: FDA-Public Use
  Company Number: PHNU2006DE03444

PATIENT
  Age: 68 Year
  Sex: Male
  Weight: 101 kg

DRUGS (5)
  1. CELLMUSTIN [Concomitant]
     Indication: PROSTATE CANCER
     Dosage: 560 MG/DAY
     Route: 065
     Dates: start: 20060816, end: 20061002
  2. ZOLADEX [Concomitant]
     Indication: PROSTATE CANCER
     Route: 058
     Dates: start: 20060125
  3. RADIOTHERAPY [Concomitant]
     Indication: PAIN
     Route: 065
     Dates: start: 20060828
  4. ZOMETA [Suspect]
     Indication: METASTASES TO BONE
     Dosage: 4 MG, ONCE/SINGLE
     Route: 042
     Dates: start: 20060718, end: 20060718
  5. ZOMETA [Suspect]
     Dosage: 4 MG, ONCE/SINGLE
     Dates: start: 20060814, end: 20060814

REACTIONS (6)
  - DENTAL TREATMENT [None]
  - METASTASES TO BONE [None]
  - NUCLEAR MAGNETIC RESONANCE IMAGING [None]
  - OSTEONECROSIS [None]
  - SCINTIGRAPHY [None]
  - X-RAY ABNORMAL [None]
